FAERS Safety Report 16941473 (Version 2)
Quarter: 2019Q4

REPORT INFORMATION
  Report Type: Spontaneous
  Country: US (occurrence: US)
  Receive Date: 20191021
  Receipt Date: 20191118
  Transmission Date: 20200122
  Serious: Yes (Other)
  Sender: FDA-Public Use
  Company Number: US-SHIRE-US201934406

PATIENT
  Age: 24 Year
  Sex: Male

DRUGS (4)
  1. CALCIUM CITRATE [Concomitant]
     Active Substance: CALCIUM CITRATE
     Indication: POST PROCEDURAL HYPOPARATHYROIDISM
  2. NATPARA (PARATHYROID HORMONE) [Suspect]
     Active Substance: PARATHYROID HORMONE
     Indication: POST PROCEDURAL HYPOPARATHYROIDISM
     Dosage: 50 MICROGRAM, 1X/DAY:QD
     Route: 058
     Dates: start: 20151028
  3. VITAMIN D [COLECALCIFEROL] [Concomitant]
     Active Substance: CHOLECALCIFEROL
     Indication: POST PROCEDURAL HYPOPARATHYROIDISM
  4. CALCITRIOL. [Concomitant]
     Active Substance: CALCITRIOL
     Indication: POST PROCEDURAL HYPOPARATHYROIDISM

REACTIONS (5)
  - Cerebrovascular accident [Unknown]
  - Product dose omission [Recovering/Resolving]
  - Myocardial infarction [Recovered/Resolved]
  - Recalled product [Unknown]
  - Product distribution issue [Unknown]

NARRATIVE: CASE EVENT DATE: 2018
